FAERS Safety Report 6415973-5 (Version None)
Quarter: 2009Q4

REPORT INFORMATION
  Report Type: 
  Country: None (occurrence: None)
  Receive Date: 20091027
  Receipt Date: 20091026
  Transmission Date: 20100525
  Serious: Yes (Life-Threatening)
  Sender: FDA-Public Use
  Company Number: D0063316A

PATIENT
  Age: 75 Year
  Sex: Male
  Weight: 71 kg

DRUGS (1)
  1. AMOXICILLIN AND CLAVULANATE POTASSIUM [Suspect]
     Indication: INFECTION
     Dosage: 875MG TWICE PER DAY
     Route: 048
     Dates: start: 20090813, end: 20090817

REACTIONS (3)
  - ACUTE HEPATIC FAILURE [None]
  - HEPATIC ENZYME INCREASED [None]
  - HEPATITIS [None]
